FAERS Safety Report 8266659-6 (Version None)
Quarter: 2012Q2

REPORT INFORMATION
  Report Type: 
  Country: None (occurrence: None)
  Receive Date: 20120407
  Receipt Date: 20120330
  Transmission Date: 20120825
  Serious: Yes (Life-Threatening)
  Sender: FDA-Public Use
  Company Number: US-MDL-2012ML000033

PATIENT

DRUGS (5)
  1. BUPRENORPHINE [Suspect]
     Indication: PRODUCT USED FOR UNKNOWN INDICATION
  2. RITALIN [Concomitant]
  3. OXYCODONE HCL [Concomitant]
  4. ADDERALL 5 [Concomitant]
  5. CONCERTA [Concomitant]

REACTIONS (1)
  - FEELING OF DESPAIR [None]
